FAERS Safety Report 4347216-0 (Version None)
Quarter: 2004Q1

REPORT INFORMATION
  Report Type: 
  Country: None (occurrence: None)
  Receive Date: 20040325
  Receipt Date: 20031229
  Transmission Date: 20041129
  Serious: No
  Sender: FDA-Public Use
  Company Number: USA031255511

PATIENT
  Age: 74 Year
  Sex: Female
  Weight: 75 kg

DRUGS (10)
  1. FORTEO [Suspect]
     Dates: start: 20030101
  2. PREDNISONE [Concomitant]
  3. PERCOCET [Concomitant]
  4. OGEN [Concomitant]
  5. CALCIUM [Concomitant]
  6. TRIMATERENE [Concomitant]
  7. PRILOSEC [Concomitant]
  8. SOMA [Concomitant]
  9. VITAMIN C [Concomitant]
  10. MULTI-VITAMIN [Concomitant]

REACTIONS (9)
  - ASTHENIA [None]
  - DIZZINESS [None]
  - FATIGUE [None]
  - HYPERHIDROSIS [None]
  - IRRITABILITY [None]
  - MUSCULAR WEAKNESS [None]
  - NAUSEA [None]
  - PAIN IN EXTREMITY [None]
  - WEIGHT INCREASED [None]
